FAERS Safety Report 7483361-9 (Version None)
Quarter: 2011Q2

REPORT INFORMATION
  Report Type: 
  Country: None (occurrence: None)
  Receive Date: 20110517
  Receipt Date: 20110503
  Transmission Date: 20111010
  Serious: Yes (Hospitalization, Other)
  Sender: FDA-Public Use
  Company Number: US-BAYER-2010-002118

PATIENT
  Age: 34 Year
  Sex: Female
  Weight: 70.29 kg

DRUGS (5)
  1. YAZ [Suspect]
     Indication: ACNE
  2. PHENTERMINE [Concomitant]
     Indication: MEDICAL DIET
     Dosage: 37.5 MG, BID
     Route: 048
  3. TRI-SPRINTEC [Concomitant]
     Dosage: UNK
     Dates: start: 20090901, end: 20091201
  4. IBUPROFEN [Concomitant]
     Dosage: 800 MG, UNK
  5. YAZ [Suspect]
     Indication: ORAL CONTRACEPTION
     Dosage: UNK
     Dates: start: 20080701, end: 20090901

REACTIONS (7)
  - COGNITIVE DISORDER [None]
  - CEREBRAL INFARCTION [None]
  - HEMIPLEGIA [None]
  - HYPOKALAEMIA [None]
  - APHASIA [None]
  - AMNESIA [None]
  - POST-TRAUMATIC STRESS DISORDER [None]
